FAERS Safety Report 15898693 (Version 1)
Quarter: 2019Q1

REPORT INFORMATION
  Report Type: Spontaneous
  Country: SE (occurrence: SE)
  Receive Date: 20190201
  Receipt Date: 20190201
  Transmission Date: 20190417
  Serious: Yes (Other)
  Sender: FDA-Public Use
  Company Number: SE-ACCORD-105011

PATIENT
  Age: 27 Year
  Sex: Male

DRUGS (2)
  1. LITHIONIT [Concomitant]
     Active Substance: LITHIUM SULFATE
     Dates: start: 201802
  2. ESCITALOPRAM [Suspect]
     Active Substance: ESCITALOPRAM OXALATE
     Indication: DEPRESSION
     Dosage: TABLET
     Route: 048
     Dates: start: 20180411, end: 20180419

REACTIONS (2)
  - Anorgasmia [Recovered/Resolved]
  - Erectile dysfunction [Recovered/Resolved]

NARRATIVE: CASE EVENT DATE: 20180412
